FAERS Safety Report 7161785-7 (Version None)
Quarter: 2010Q4

REPORT INFORMATION
  Report Type: 
  Country: None (occurrence: None)
  Receive Date: 20101201
  Receipt Date: 20101122
  Transmission Date: 20110411
  Serious: Yes (Hospitalization)
  Sender: FDA-Public Use
  Company Number: 20109350

PATIENT
  Age: 4 Year
  Sex: Male

DRUGS (12)
  1. GABALON INTRATHECAL(BACLOFEN INJECTION) [Suspect]
     Indication: MUSCLE SPASTICITY
     Dosage: DAILY, INTRATHECAL
     Route: 037
  2. DANTRIUM [Concomitant]
  3. PHENOBAL [Concomitant]
  4. MYSTAN [Concomitant]
  5. DIAZEPAM [Concomitant]
  6. ARTANE [Concomitant]
  7. MUCOSIL-10 [Concomitant]
  8. MUCODYNE [Concomitant]
  9. ONON [Concomitant]
  10. TRICLORYL [Concomitant]
  11. ASVERIN [Concomitant]
  12. PERIACTIN [Concomitant]

REACTIONS (1)
  - IMPLANT SITE EFFUSION [None]
